FAERS Safety Report 9440343 (Version 2)
Quarter: 2013Q3

REPORT INFORMATION
  Report Type: Spontaneous
  Country: None (occurrence: GB)
  Receive Date: 20130805
  Receipt Date: 20130904
  Transmission Date: 20140515
  Serious: Yes (Other)
  Sender: FDA-Public Use
  Company Number: GB-TEVA-421010ISR

PATIENT
  Age: 28 Year
  Sex: Female
  Weight: 51.7 kg

DRUGS (4)
  1. AMITRIPTYLINE [Suspect]
     Indication: PRODUCT USED FOR UNKNOWN INDICATION
     Dosage: DOSE: 50/25 MG (NOS)
     Route: 048
     Dates: start: 201210
  2. AMITRIPTYLINE [Suspect]
     Indication: PRODUCT USED FOR UNKNOWN INDICATION
     Dosage: DOSE: 5 OR 10 MG
     Route: 048
  3. PHENERGAN [Suspect]
     Indication: INSOMNIA
     Dosage: 1 DOSAGE FORMS DAILY; STRENGTH: 25 MG
     Route: 048
     Dates: start: 20130628, end: 20130707
  4. FLUOXETINE [Concomitant]
     Indication: DEPRESSION
     Dosage: STRENGTH: 20MG
     Dates: start: 20130628

REACTIONS (3)
  - Vaginal haemorrhage [Recovered/Resolved]
  - Vulvovaginal pruritus [Unknown]
  - Vaginal disorder [Unknown]
